FAERS Safety Report 15402424 (Version 1)
Quarter: 2018Q3

REPORT INFORMATION
  Report Type: Spontaneous
  Country: US (occurrence: US)
  Receive Date: 20180915
  Receipt Date: 20180915
  Transmission Date: 20181010
  Serious: Yes (Life-Threatening, Hospitalization)
  Sender: FDA-Public Use
  Company Number: None

PATIENT
  Age: 68 Year
  Sex: Female
  Weight: 71.55 kg

DRUGS (6)
  1. VITAMIN D3 [Concomitant]
     Active Substance: CHOLECALCIFEROL
  2. MULTI?VIT [Concomitant]
     Active Substance: VITAMINS
  3. VITAMIN B COMPLEX [Concomitant]
     Active Substance: CYANOCOBALAMIN\DEXPANTHENOL\NIACINAMIDE\PYRIDOXINE HYDROCHLORIDE\RIBOFLAVIN 5^-PHOSPHATE SODIUM\THIAMINE HYDROCHLORIDE\VITAMIN B COMPLEX
  4. ARMOUR THYROID [Concomitant]
     Active Substance: THYROID, PORCINE
  5. RITUXAN [Suspect]
     Active Substance: RITUXIMAB
     Indication: THROMBOCYTOPENIA
     Route: 042
     Dates: start: 20180501, end: 20180508
  6. CALCIUM [Concomitant]
     Active Substance: CALCIUM

REACTIONS (11)
  - Underdose [None]
  - Vomiting [None]
  - Rash [None]
  - Lymphadenopathy [None]
  - Nausea [None]
  - Hypotension [None]
  - Dizziness [None]
  - Drug hypersensitivity [None]
  - Pyrexia [None]
  - Feeling abnormal [None]
  - Arthralgia [None]

NARRATIVE: CASE EVENT DATE: 20180508
